FAERS Safety Report 4779166-X (Version None)
Quarter: 2005Q3

REPORT INFORMATION
  Report Type: 
  Country: None (occurrence: None)
  Receive Date: 20050923
  Receipt Date: 20050913
  Transmission Date: 20060218
  Serious: No
  Sender: FDA-Public Use
  Company Number: 05H-163-0301935-00

PATIENT
  Sex: Female

DRUGS (1)
  1. HEPARIN SODIUM [Suspect]
     Indication: CATHETER SITE RELATED REACTION
     Dates: start: 20050701

REACTIONS (4)
  - APNOEA [None]
  - CYANOSIS [None]
  - DYSPNOEA [None]
  - POST PROCEDURAL COMPLICATION [None]
